FAERS Safety Report 5533147-7 (Version None)
Quarter: 2007Q4

REPORT INFORMATION
  Report Type: 
  Country: None (occurrence: None)
  Receive Date: 20071129
  Receipt Date: 20071129
  Transmission Date: 20080405
  Serious: Yes (Hospitalization)
  Sender: FDA-Public Use
  Company Number: None

PATIENT
  Age: 58 Year
  Sex: Male
  Weight: 77 kg

DRUGS (1)
  1. BONIVA [Suspect]
     Indication: OSTEOPOROSIS
     Dosage: 150MG MONTHLY ORAL APPROX 6MON
     Route: 048

REACTIONS (4)
  - ACUTE CORONARY SYNDROME [None]
  - ADVERSE DRUG REACTION [None]
  - CHEST PAIN [None]
  - DIZZINESS [None]
